FAERS Safety Report 6620761-0 (Version None)
Quarter: 2010Q1

REPORT INFORMATION
  Report Type: 
  Country: None (occurrence: None)
  Receive Date: 20100309
  Receipt Date: 20100225
  Transmission Date: 20100710
  Serious: Yes (Other)
  Sender: FDA-Public Use
  Company Number: GB-PFIZER INC-2010025009

PATIENT
  Sex: Female

DRUGS (1)
  1. PHENYTOIN SODIUM CAP [Suspect]
     Dosage: UNK

REACTIONS (2)
  - BLOOD ALBUMIN DECREASED [None]
  - DRUG LEVEL INCREASED [None]
